FAERS Safety Report 8989825 (Version 4)
Quarter: 2015Q1

REPORT INFORMATION
  Report Type: Spontaneous
  Country: US (occurrence: US)
  Receive Date: 20121228
  Receipt Date: 20150220
  Transmission Date: 20150721
  Serious: Yes (Disabling, Other)
  Sender: FDA-Public Use
  Company Number: US-SANOFI-AVENTIS-2012SA093693

PATIENT
  Age: 65 Year
  Sex: Male

DRUGS (16)
  1. HEPARIN [Concomitant]
     Active Substance: HEPARIN SODIUM
     Dosage: DOSE:5000 UNIT(S)
     Route: 058
     Dates: end: 20111110
  2. PERIDEX [Concomitant]
     Active Substance: CHLORHEXIDINE GLUCONATE
     Route: 061
     Dates: end: 20111111
  3. ZOSYN [Concomitant]
     Active Substance: PIPERACILLIN SODIUM\TAZOBACTAM SODIUM
     Route: 042
     Dates: end: 20111111
  4. PRINIVIL [Concomitant]
     Active Substance: LISINOPRIL
     Dates: end: 20111110
  5. VANCOMYCIN [Concomitant]
     Active Substance: VANCOMYCIN
  6. ACETAMINOPHEN. [Concomitant]
     Active Substance: ACETAMINOPHEN
     Dates: end: 20111110
  7. MAGNESIUM HYDROXIDE. [Concomitant]
     Active Substance: MAGNESIUM HYDROXIDE
     Route: 048
  8. KEPPRA [Concomitant]
     Active Substance: LEVETIRACETAM
     Route: 042
     Dates: end: 20111110
  9. PROVIGIL [Concomitant]
     Active Substance: MODAFINIL
     Dates: end: 20111110
  10. DIOCTO [Concomitant]
     Active Substance: DOCUSATE SODIUM
     Dates: end: 20111110
  11. PLAVIX [Suspect]
     Active Substance: CLOPIDOGREL BISULFATE
     Indication: ACUTE CORONARY SYNDROME
     Route: 048
     Dates: start: 20101209, end: 20111109
  12. ASPIRIN. [Concomitant]
     Active Substance: ASPIRIN
     Dates: start: 20101209, end: 20111109
  13. OMEPRAZOLE. [Concomitant]
     Active Substance: OMEPRAZOLE
     Dates: end: 20111110
  14. LOPRESSOR [Concomitant]
     Active Substance: METOPROLOL TARTRATE
     Dates: end: 20111110
  15. LIPITOR [Concomitant]
     Active Substance: ATORVASTATIN CALCIUM
     Dates: end: 20111110
  16. NORMAL SALINE [Concomitant]
     Active Substance: SODIUM CHLORIDE

REACTIONS (5)
  - Cerebral haemorrhage [Unknown]
  - Mental retardation [Unknown]
  - Cerebrovascular accident [Unknown]
  - Quadriplegia [Unknown]
  - Aphasia [Unknown]

NARRATIVE: CASE EVENT DATE: 20110911
